FAERS Safety Report 19325099 (Version 1)
Quarter: 2021Q2

REPORT INFORMATION
  Report Type: Spontaneous
  Country: ES (occurrence: ES)
  Receive Date: 20210528
  Receipt Date: 20210528
  Transmission Date: 20210717
  Serious: Yes (Other)
  Sender: FDA-Public Use
  Company Number: ES-SAMSUNG BIOEPIS-SB-2021-12738

PATIENT
  Age: 59 Year
  Sex: Male
  Weight: 100 kg

DRUGS (6)
  1. IMRALDI [Suspect]
     Active Substance: ADALIMUMAB
     Indication: PSORIATIC ARTHROPATHY
     Dosage: 2 PRE?FILLED PENS OF 0.8 ML, UNKNOWN
     Route: 065
     Dates: start: 20200228, end: 20210118
  2. TOUJEO [Concomitant]
     Active Substance: INSULIN GLARGINE
     Indication: PRODUCT USED FOR UNKNOWN INDICATION
     Dosage: 300 UNITS/ML SOLOSTAR INJECTABLE SOLUTION IN PRE?FILLED PEN, 3 PENS 1.5 ML
     Route: 065
  3. ARAVA [Suspect]
     Active Substance: LEFLUNOMIDE
     Indication: PSORIATIC ARTHROPATHY
     Dosage: FILM?COATED TABLET, 30 TABLETS (BOTTLE)
     Route: 065
     Dates: start: 20200228, end: 20210118
  4. RISTFOR [Concomitant]
     Active Substance: METFORMIN HYDROCHLORIDE\SITAGLIPTIN PHOSPHATE
     Indication: PRODUCT USED FOR UNKNOWN INDICATION
     Dosage: 50 MG/1000 MG FILM COATED TABLET, 56 TABLETS
     Route: 065
  5. SIMVASTATINA ALTER [Concomitant]
     Active Substance: SIMVASTATIN
     Indication: PRODUCT USED FOR UNKNOWN INDICATION
     Dosage: EFG FILM?COATED TABLETS, 28 TABLETS
     Route: 065
  6. LOBIVON PLUS [Concomitant]
     Active Substance: HYDROCHLOROTHIAZIDE\NEBIVOLOL HYDROCHLORIDE
     Indication: PRODUCT USED FOR UNKNOWN INDICATION
     Dosage: LOBIVON PLUS 5 MG/12.5 MG FILM?COATED TABLETS, 28 TABLETS, UNKNOWN
     Route: 065

REACTIONS (3)
  - Liver disorder [Unknown]
  - Condition aggravated [Unknown]
  - Rash [Unknown]

NARRATIVE: CASE EVENT DATE: 202008
